FAERS Safety Report 8990538 (Version 1)
Quarter: 2012Q4

REPORT INFORMATION
  Report Type: 
  Country: JP (occurrence: JP)
  Receive Date: 20121228
  Receipt Date: 20121228
  Transmission Date: 20130627
  Serious: Yes (Life-Threatening)
  Sender: FDA-Public Use
  Company Number: JP-MYLANLABS-2012S1026084

PATIENT
  Age: 54 Year
  Sex: Male
  Weight: 49 kg

DRUGS (9)
  1. MEPIVACAINE [Suspect]
     Indication: EPIDURAL ANAESTHESIA
     Dosage: 5 mL of 1% mepivacaine
     Route: 008
  2. SEVOFLURANE [Suspect]
     Indication: MAINTENANCE OF ANAESTHESIA
     Dosage: 1-1.5%
     Route: 065
  3. VECURONIUM BROMIDE [Suspect]
     Indication: INDUCTION OF ANAESTHESIA
     Dosage: 5mg
     Route: 065
  4. FENTANYL [Suspect]
     Indication: INDUCTION OF ANAESTHESIA
     Dosage: 50 microg
     Route: 065
  5. PROPOFOL [Suspect]
     Indication: INDUCTION OF ANAESTHESIA
     Dosage: 70mg
     Route: 065
  6. BROMPERIDOL [Suspect]
     Indication: SCHIZOPHRENIA
     Dosage: 3 mg/day
     Route: 065
  7. PERICIAZINE [Suspect]
     Indication: SCHIZOPHRENIA
     Dosage: 10 mg/day
     Route: 048
  8. LIDOCAINE [Concomitant]
     Dosage: 3mL of 1% lidocaine
     Route: 008
  9. OXYGEN [Concomitant]
     Indication: MAINTENANCE OF ANAESTHESIA
     Dosage: 1 L/min with air 2 L/min
     Route: 065

REACTIONS (5)
  - Hypotension [Recovered/Resolved]
  - Ventricular fibrillation [Recovered/Resolved]
  - Cardiac arrest [Recovered/Resolved]
  - Renal neoplasm [None]
  - Heart rate decreased [None]
